FAERS Safety Report 5688191-6 (Version None)
Quarter: 2008Q1

REPORT INFORMATION
  Report Type: 
  Country: None (occurrence: None)
  Receive Date: 20080327
  Receipt Date: 20080314
  Transmission Date: 20080703
  Serious: Yes (Other)
  Sender: FDA-Public Use
  Company Number: SPV1-2008-00565

PATIENT
  Age: 7 Year
  Sex: Female

DRUGS (1)
  1. ADDERALL XR 30 [Suspect]
     Dosage: 2X/DAY: BID, ORAL
     Route: 048

REACTIONS (4)
  - DYSPHEMIA [None]
  - MYDRIASIS [None]
  - NAUSEA [None]
  - VISION BLURRED [None]
